FAERS Safety Report 19609875 (Version 1)
Quarter: 2021Q3

REPORT INFORMATION
  Report Type: Spontaneous
  Country: US (occurrence: US)
  Receive Date: 20210726
  Receipt Date: 20210726
  Transmission Date: 20211014
  Serious: Yes (Other)
  Sender: FDA-Public Use
  Company Number: US-MYLANLABS-2021M1044232

PATIENT
  Sex: Male
  Weight: 95 kg

DRUGS (1)
  1. MUSE [Suspect]
     Active Substance: ALPROSTADIL
     Indication: ERECTILE DYSFUNCTION
     Dosage: 1000 MICROGRAM, ONCE (1000 MCG ONE TIME)
     Route: 066
     Dates: start: 20210710, end: 20210710

REACTIONS (1)
  - Drug ineffective [Not Recovered/Not Resolved]

NARRATIVE: CASE EVENT DATE: 20210710
